FAERS Safety Report 6136203-8 (Version None)
Quarter: 2009Q1

REPORT INFORMATION
  Report Type: 
  Country: None (occurrence: None)
  Receive Date: 20090330
  Receipt Date: 20090226
  Transmission Date: 20090719
  Serious: No
  Sender: FDA-Public Use
  Company Number: US-BAYER-200914543NA

PATIENT
  Age: 29 Year
  Sex: Female
  Weight: 57 kg

DRUGS (3)
  1. YAZ [Suspect]
     Indication: CONTRACEPTION
     Route: 048
     Dates: start: 20090101
  2. MIRENA [Suspect]
     Indication: CONTRACEPTION
     Dosage: CONTINUOUS DELIVERY
     Route: 015
     Dates: end: 20090101
  3. ADVIL [Concomitant]

REACTIONS (2)
  - ABNORMAL WITHDRAWAL BLEEDING [None]
  - AMENORRHOEA [None]
